FAERS Safety Report 12812241 (Version 4)
Quarter: 2016Q4

REPORT INFORMATION
  Report Type: Spontaneous
  Country: ES (occurrence: ES)
  Receive Date: 20161005
  Receipt Date: 20161213
  Transmission Date: 20170207
  Serious: Yes (Life-Threatening, Hospitalization, Other)
  Sender: FDA-Public Use
  Company Number: PHHY2016ES134557

PATIENT
  Age: 86 Year
  Sex: Male

DRUGS (6)
  1. PROMETAX [Suspect]
     Active Substance: RIVASTIGMINE
     Indication: DEMENTIA ALZHEIMER^S TYPE
     Dosage: 9.5 MG, QD  PATCH 10 CM2
     Route: 062
  2. BONESIL D FLAS [Concomitant]
     Indication: PRODUCT USED FOR UNKNOWN INDICATION
     Dosage: UNK
     Route: 065
  3. DUODART [Concomitant]
     Active Substance: DUTASTERIDE\TAMSULOSIN
     Indication: PRODUCT USED FOR UNKNOWN INDICATION
     Dosage: UNK
     Route: 065
  4. PAROXETINE. [Concomitant]
     Active Substance: PAROXETINE
     Indication: PRODUCT USED FOR UNKNOWN INDICATION
     Dosage: UNK
     Route: 065
  5. ADIRO [Concomitant]
     Active Substance: ASPIRIN
     Indication: PRODUCT USED FOR UNKNOWN INDICATION
     Dosage: UNK
     Route: 065
  6. SEGURIL [Concomitant]
     Active Substance: FUROSEMIDE
     Indication: PRODUCT USED FOR UNKNOWN INDICATION
     Dosage: UNK
     Route: 065

REACTIONS (10)
  - Product quality issue [Not Recovered/Not Resolved]
  - Application site vesicles [Not Recovered/Not Resolved]
  - Application site erythema [Not Recovered/Not Resolved]
  - Aggression [Not Recovered/Not Resolved]
  - Pulmonary embolism [Recovering/Resolving]
  - Dyspnoea [Recovering/Resolving]
  - Abdominal distension [Recovering/Resolving]
  - Application site pruritus [Not Recovered/Not Resolved]
  - Hyperhidrosis [Recovering/Resolving]
  - Agitation [Not Recovered/Not Resolved]

NARRATIVE: CASE EVENT DATE: 201611
